FAERS Safety Report 7548074-3 (Version None)
Quarter: 2011Q2

REPORT INFORMATION
  Report Type: 
  Country: None (occurrence: None)
  Receive Date: 20110608
  Receipt Date: 20110510
  Transmission Date: 20111010
  Serious: Yes (Other)
  Sender: FDA-Public Use
  Company Number: 1000019259

PATIENT
  Sex: Female

DRUGS (3)
  1. LEXAPRO [Suspect]
     Indication: DEPRESSION
     Dosage: 10 MG (10 MG,1 IN 1 D)
     Dates: start: 20110228, end: 20110301
  2. OMEPRAZOLE [Suspect]
  3. AMANTADINE (AMANTADINE) (AMANTADINE) [Concomitant]

REACTIONS (3)
  - DRUG INTERACTION [None]
  - TREMOR [None]
  - SEPSIS [None]
